FAERS Safety Report 23650882 (Version 1)
Quarter: 2024Q1

REPORT INFORMATION
  Report Type: Spontaneous
  Country: IT (occurrence: None)
  Receive Date: 20240320
  Receipt Date: 20240320
  Transmission Date: 20240409
  Serious: Yes (Hospitalization)
  Sender: FDA-Public Use
  Company Number: 2024A062785

PATIENT
  Age: 20 Year
  Sex: Male

DRUGS (4)
  1. QUETIAPINE [Suspect]
     Active Substance: QUETIAPINE
     Indication: Suicide attempt
     Dosage: 150.0MG UNKNOWN
     Route: 048
     Dates: start: 20240303, end: 20240303
  2. QUETIAPINE [Suspect]
     Active Substance: QUETIAPINE
     Indication: Intentional overdose
     Dosage: 150.0MG UNKNOWN
     Route: 048
     Dates: start: 20240303, end: 20240303
  3. LYRICA [Suspect]
     Active Substance: PREGABALIN
     Indication: Intentional overdose
     Dosage: 3.15G UNKNOWN
     Route: 048
     Dates: start: 20240303, end: 20240303
  4. LYRICA [Suspect]
     Active Substance: PREGABALIN
     Indication: Suicide attempt
     Dosage: 3.15G UNKNOWN
     Route: 048
     Dates: start: 20240303, end: 20240303

REACTIONS (3)
  - Intentional overdose [Not Recovered/Not Resolved]
  - Suicide attempt [Not Recovered/Not Resolved]
  - Somnolence [Not Recovered/Not Resolved]

NARRATIVE: CASE EVENT DATE: 20240303
